FAERS Safety Report 4622709-7 (Version None)
Quarter: 2005Q1

REPORT INFORMATION
  Report Type: 
  Country: None (occurrence: None)
  Receive Date: 20050328
  Receipt Date: 20050328
  Transmission Date: 20050727
  Serious: Yes (Hospitalization)
  Sender: FDA-Public Use
  Company Number: None

PATIENT
  Sex: Male
  Weight: 89.8122 kg

DRUGS (7)
  1. ALIMTA [Suspect]
     Indication: NON-SMALL CELL LUNG CANCER
     Dosage: 1000 MG IV Q 21 DAYS
     Route: 042
  2. ATENOLOL [Concomitant]
  3. DIGOXIN [Concomitant]
  4. VERAPAMIL [Concomitant]
  5. COUMADIN [Concomitant]
  6. FOLIC ACID [Concomitant]
  7. B-12 [Concomitant]

REACTIONS (4)
  - ATRIAL FIBRILLATION [None]
  - RESPIRATORY DISORDER [None]
  - RESPIRATORY FAILURE [None]
  - SUPRAVENTRICULAR TACHYCARDIA [None]
